FAERS Safety Report 9470334 (Version 1)
Quarter: 2013Q3

REPORT INFORMATION
  Report Type: Spontaneous
  Country: US (occurrence: US)
  Receive Date: 20130822
  Receipt Date: 20130822
  Transmission Date: 20140515
  Serious: No
  Sender: FDA-Public Use
  Company Number: US-SANOFI-AVENTIS-2012SA087022

PATIENT
  Age: 84 Year
  Sex: Female

DRUGS (2)
  1. MULTAQ [Suspect]
     Dosage: 1/2 A PILL AFTER BREAKFAST AND LUNCH
     Route: 048
     Dates: start: 2012
  2. ANTIHYPERTENSIVES [Concomitant]

REACTIONS (3)
  - Poor quality sleep [Unknown]
  - Alopecia [Unknown]
  - Wrong technique in drug usage process [Unknown]
